FAERS Safety Report 4286594-8 (Version None)
Quarter: 2004Q1

REPORT INFORMATION
  Report Type: 
  Country: None (occurrence: None)
  Receive Date: 20040204
  Receipt Date: 20040123
  Transmission Date: 20041129
  Serious: Yes (Other)
  Sender: FDA-Public Use
  Company Number: SE-SHR-04-020220

PATIENT
  Age: 30 Year
  Sex: Female

DRUGS (1)
  1. LEVONOVA(LEVONORGESTREL) IUS [Suspect]
     Indication: CONTRACEPTION
     Dosage: 20 UG/DAY, CONT, INTRA-UTERINE
     Route: 015
     Dates: start: 19990101, end: 20040113

REACTIONS (5)
  - ABORTION INDUCED [None]
  - COMPLICATIONS OF MATERNAL EXPOSURE TO THERAPEUTIC DRUGS [None]
  - INTRA-UTERINE DEATH [None]
  - MATERNAL DRUGS AFFECTING FOETUS [None]
  - PREGNANCY WITH CONTRACEPTIVE DEVICE [None]
